FAERS Safety Report 10388800 (Version 1)
Quarter: 2014Q1

REPORT INFORMATION
  Report Type: Spontaneous
  Country: US (occurrence: None)
  Receive Date: 20140306
  Receipt Date: 20140306
  Transmission Date: 20141002
  Serious: Yes (Hospitalization, Other)
  Sender: FDA-Public Use
  Company Number: 163-21880-13070086

PATIENT
  Age: 83 Year
  Sex: Female

DRUGS (30)
  1. REVLIMID (LENALIDOMIDE) (CAPSULES) [Suspect]
     Indication: PLASMA CELL MYELOMA
     Dosage: 5 MG, 21 IN 21 D, PO?
     Route: 048
     Dates: start: 20130607, end: 20130628
  2. ALLOPURINOL [Concomitant]
  3. DETROL LA (TOLTERODINE L-TARTRATE) [Concomitant]
  4. DEXAMETHASONE [Concomitant]
  5. FERROUS FUMARATE [Concomitant]
  6. METOPROLOL TARTRATE [Concomitant]
  7. MULTIVITAMINS [Concomitant]
  8. NORVASC (AMLODIPINE BESILATE) [Concomitant]
  9. IRON [Concomitant]
  10. CALCIUM CARBONATE / VITAMIN D3 (LEKOVIT CA) [Concomitant]
  11. SILVER CENTRUM [Concomitant]
  12. FERROUS SULFATE [Concomitant]
  13. LASIX (FUROSEMIDE) [Concomitant]
  14. MAGNESIUM OXIDE [Concomitant]
  15. MARINOL (DRONABINOL) [Concomitant]
  16. PEPCID (FAMOTIDINE) [Concomitant]
  17. LISINOPRIL [Concomitant]
  18. METOPROLOL SUCCINATE [Concomitant]
  19. ZETIA (EZETIMIBE) [Concomitant]
  20. ZOCOR (SIMVASTATIN) [Concomitant]
  21. K-DUR (POTASSIUM CHLORIDE) [Concomitant]
  22. REMERON (MIRTAZAPINE) [Concomitant]
  23. TEMAZEPAM [Concomitant]
  24. VELCADE (BORTEZOMIB) [Concomitant]
  25. VYTORIN (INEGY) [Concomitant]
  26. ULTRACET [Concomitant]
  27. PROTONIX [Concomitant]
  28. NACL WITH POTASSIUM (EL-4) [Concomitant]
  29. INSULIN [Concomitant]
  30. BABY ASPIRIN (ACETYLSALICYLIC ACID) [Concomitant]

REACTIONS (8)
  - Urinary tract infection [None]
  - Urosepsis [None]
  - Pyrexia [None]
  - Renal failure acute [None]
  - Deep vein thrombosis [None]
  - Staphylococcal infection [None]
  - Anaemia [None]
  - Pneumonia [None]
